FAERS Safety Report 11468206 (Version 1)
Quarter: 2015Q3

REPORT INFORMATION
  Report Type: Spontaneous
  Country: FR (occurrence: FR)
  Receive Date: 20150908
  Receipt Date: 20150908
  Transmission Date: 20151125
  Serious: Yes (Hospitalization)
  Sender: FDA-Public Use
  Company Number: FR-SA-2015SA132857

PATIENT
  Age: 64 Year
  Sex: Male

DRUGS (1)
  1. TAXOTERE [Suspect]
     Active Substance: DOCETAXEL
     Indication: LUNG ADENOCARCINOMA STAGE IV
     Dosage: SINGLE DOSE
     Route: 042
     Dates: start: 20150504, end: 20150731

REACTIONS (2)
  - Enterovesical fistula [Unknown]
  - Colitis [Unknown]

NARRATIVE: CASE EVENT DATE: 20150801
